FAERS Safety Report 15487117 (Version 1)
Quarter: 2018Q4

REPORT INFORMATION
  Report Type: Spontaneous
  Country: US (occurrence: US)
  Receive Date: 20181011
  Receipt Date: 20181011
  Transmission Date: 20190205
  Serious: No
  Sender: FDA-Public Use
  Company Number: US-ASTRAZENECA-2018SF19265

PATIENT

DRUGS (1)
  1. BEVESPI AEROSPHERE [Suspect]
     Active Substance: FORMOTEROL FUMARATE\GLYCOPYRROLATE
     Indication: CHRONIC OBSTRUCTIVE PULMONARY DISEASE
     Dosage: 9/4.8MCG 2 PUFFS TWICE A DAY
     Route: 055
     Dates: start: 20180502, end: 201808

REACTIONS (2)
  - Visual impairment [Recovered/Resolved]
  - Intentional product misuse [Unknown]
